FAERS Safety Report 9846424 (Version 1)
Quarter: 2014Q1

REPORT INFORMATION
  Report Type: Spontaneous
  Country: US (occurrence: None)
  Receive Date: 20140123
  Receipt Date: 20140123
  Transmission Date: 20141002
  Serious: Yes (Disabling)
  Sender: FDA-Public Use
  Company Number: None

PATIENT
  Age: 41 Year
  Sex: Female
  Weight: 65.77 kg

DRUGS (1)
  1. BOTOX [Suspect]
     Indication: MIGRAINE
     Dosage: 165 UNITS ONCE INTO THE MUSCLE
     Route: 030
     Dates: start: 20130109, end: 20130109

REACTIONS (35)
  - Eyelid ptosis [None]
  - Vertigo [None]
  - Nausea [None]
  - Fall [None]
  - Tinnitus [None]
  - Confusional state [None]
  - Amnesia [None]
  - Disturbance in attention [None]
  - Aphasia [None]
  - Dry eye [None]
  - Dry mouth [None]
  - Muscular weakness [None]
  - Dysphagia [None]
  - Hypoaesthesia [None]
  - Paraesthesia [None]
  - Tremor [None]
  - Dyspnoea [None]
  - Wheezing [None]
  - Anxiety [None]
  - Convulsion [None]
  - Loss of consciousness [None]
  - Respiratory arrest [None]
  - Cardiac arrest [None]
  - Muscle spasms [None]
  - Bedridden [None]
  - Dizziness [None]
  - Asthenia [None]
  - Vision blurred [None]
  - Diplopia [None]
  - Eustachian tube obstruction [None]
  - Rhinorrhoea [None]
  - Sinus headache [None]
  - Impaired gastric emptying [None]
  - Abdominal distension [None]
  - Gastrooesophageal reflux disease [None]
